FAERS Safety Report 6856228-4 (Version None)
Quarter: 2010Q2

REPORT INFORMATION
  Report Type: 
  Country: None (occurrence: None)
  Receive Date: 20100630
  Receipt Date: 20100330
  Transmission Date: 20101027
  Serious: No
  Sender: FDA-Public Use
  Company Number: 1000012807

PATIENT
  Age: 66 Year
  Sex: Female

DRUGS (6)
  1. BYSTOLIC [Suspect]
     Indication: HYPERTENSION
     Dosage: 2.5 MG (2.5 MG,1 IN 1 D), ORAL
     Route: 048
     Dates: start: 20100319
  2. EXFORGE HCT [Suspect]
     Indication: HYPERTENSION
     Dosage: 5/160/12.5 MG (1 IN 1 D), ORAL
     Route: 048
     Dates: start: 20100317
  3. ZOCOR [Concomitant]
  4. MULTI-VITAMINS [Concomitant]
  5. CALCIUM [Concomitant]
  6. COQ10 [Concomitant]

REACTIONS (2)
  - DRUG INTERACTION [None]
  - HOT FLUSH [None]
